FAERS Safety Report 5697587-8 (Version None)
Quarter: 2008Q2

REPORT INFORMATION
  Report Type: 
  Country: None (occurrence: None)
  Receive Date: 20080408
  Receipt Date: 20080328
  Transmission Date: 20081010
  Serious: Yes (Other)
  Sender: FDA-Public Use
  Company Number: JP-JNJFOC-20071107958

PATIENT
  Sex: Male

DRUGS (6)
  1. DORIBAX [Suspect]
     Route: 041
  2. DORIBAX [Suspect]
     Indication: SEPSIS
     Route: 041
  3. CRITPAN [Concomitant]
     Route: 041
  4. UNKNOWN MEDICATION [Concomitant]
     Indication: CARDIAC DISORDER
     Route: 041
  5. LASIX [Concomitant]
     Route: 041
  6. NEUART [Concomitant]
     Route: 041

REACTIONS (3)
  - HEPATIC FUNCTION ABNORMAL [None]
  - PLATELET COUNT DECREASED [None]
  - WHITE BLOOD CELL COUNT INCREASED [None]
